FAERS Safety Report 5640097-4 (Version None)
Quarter: 2008Q1

REPORT INFORMATION
  Report Type: 
  Country: None (occurrence: None)
  Receive Date: 20080227
  Receipt Date: 20080108
  Transmission Date: 20080703
  Serious: No
  Sender: FDA-Public Use
  Company Number: US-BAXTER-2008BH000023

PATIENT
  Age: 37 Year
  Sex: Male
  Weight: 104 kg

DRUGS (10)
  1. HEPARIN SODIUM [Suspect]
     Indication: THROMBOSIS PROPHYLAXIS
     Route: 042
     Dates: start: 20071228, end: 20071228
  2. HEPARIN SODIUM [Suspect]
     Route: 042
     Dates: start: 20071228, end: 20071228
  3. PHOSLO [Concomitant]
     Indication: DRUG USE FOR UNKNOWN INDICATION
     Route: 065
  4. HECTOROL [Concomitant]
     Indication: DRUG USE FOR UNKNOWN INDICATION
     Dosage: DOSE UNIT:UNKNOWN
     Route: 065
  5. IRON SUCROSE [Concomitant]
     Indication: DRUG USE FOR UNKNOWN INDICATION
     Dosage: DOSE UNIT:UNKNOWN
     Route: 065
  6. LISINOPRIL [Concomitant]
     Indication: DRUG USE FOR UNKNOWN INDICATION
     Route: 065
  7. ARANESP [Concomitant]
     Indication: DRUG USE FOR UNKNOWN INDICATION
     Dosage: DOSE UNIT:UNKNOWN
     Route: 065
  8. VITAMIN B COMPLEX CAP [Concomitant]
     Indication: DRUG USE FOR UNKNOWN INDICATION
     Dosage: DOSE UNIT:UNKNOWN
     Route: 065
  9. FOSRENOL [Concomitant]
     Indication: DRUG USE FOR UNKNOWN INDICATION
     Route: 065
  10. CLONIDINE [Concomitant]
     Indication: DRUG USE FOR UNKNOWN INDICATION
     Route: 065

REACTIONS (6)
  - BLOOD PRESSURE DECREASED [None]
  - BURNING SENSATION [None]
  - DIZZINESS [None]
  - FEELING HOT [None]
  - NAUSEA [None]
  - TRISMUS [None]
